FAERS Safety Report 7681817-7 (Version None)
Quarter: 2011Q3

REPORT INFORMATION
  Report Type: 
  Country: None (occurrence: None)
  Receive Date: 20110812
  Receipt Date: 20110805
  Transmission Date: 20111222
  Serious: Yes (Death, Other)
  Sender: FDA-Public Use
  Company Number: US-BAYER-200939771NA

PATIENT
  Age: 73 Year
  Sex: Male
  Weight: 94 kg

DRUGS (11)
  1. AMIODARONE HCL [Concomitant]
  2. PROTONIX [Concomitant]
     Dosage: 40 MG, QD
     Route: 048
  3. WHOLE BLOOD [Concomitant]
     Dosage: 9 UNITS
     Dates: start: 20071107
  4. ESMOLOL [Concomitant]
     Dosage: 50 MG, UNK
     Route: 042
     Dates: start: 20071102, end: 20071106
  5. ENALAPRIL MALEATE [Concomitant]
  6. INSULIN [Concomitant]
     Dosage: SLIDING SCALE
  7. METOPROLOL TARTRATE [Concomitant]
     Dosage: 75 MG, BID
     Route: 048
  8. PLASMA [Concomitant]
     Dosage: 5 UNITS
     Dates: start: 20071107
  9. TRASYLOL [Suspect]
     Indication: AORTIC ANEURYSM REPAIR
     Dosage: 10,000U/ML
     Route: 042
     Dates: start: 20071107, end: 20071107
  10. ACETAMINOPHEN [Concomitant]
  11. LISINOPRIL [Concomitant]
     Dosage: 5 MG, QD
     Route: 048

REACTIONS (12)
  - PAIN [None]
  - STRESS [None]
  - UNEVALUABLE EVENT [None]
  - EMOTIONAL DISTRESS [None]
  - FEAR [None]
  - RENAL INJURY [None]
  - DEATH [None]
  - RENAL IMPAIRMENT [None]
  - ANXIETY [None]
  - RENAL FAILURE [None]
  - ANHEDONIA [None]
  - INJURY [None]
